FAERS Safety Report 5482619-2 (Version None)
Quarter: 2007Q4

REPORT INFORMATION
  Report Type: 
  Country: None (occurrence: None)
  Receive Date: 20071011
  Receipt Date: 20070820
  Transmission Date: 20080405
  Serious: No
  Sender: FDA-Public Use
  Company Number: A0673052A

PATIENT
  Age: 69 Year
  Sex: Female

DRUGS (15)
  1. TYKERB [Suspect]
     Indication: BREAST CANCER
     Dosage: 1250MG PER DAY
     Route: 048
  2. XELODA [Suspect]
     Indication: DRUG USE FOR UNKNOWN INDICATION
     Route: 065
  3. IMODIUM [Concomitant]
  4. LASIX [Concomitant]
  5. PREVACID [Concomitant]
  6. COUMADIN [Concomitant]
  7. POTASSIUM CHLORIDE [Concomitant]
  8. ACCUPRIL [Concomitant]
  9. UNKNOWN MEDICATION [Concomitant]
  10. LEVBID [Concomitant]
  11. ASPIRIN [Concomitant]
  12. CORGARD [Concomitant]
  13. ZYRTEC [Concomitant]
  14. TYLENOL ARTHRITIS [Concomitant]
  15. MYCELEX [Concomitant]

REACTIONS (4)
  - DIARRHOEA [None]
  - FLATULENCE [None]
  - ILL-DEFINED DISORDER [None]
  - NAUSEA [None]
